FAERS Safety Report 16618551 (Version 1)
Quarter: 2019Q3

REPORT INFORMATION
  Report Type: Spontaneous
  Country: US (occurrence: US)
  Receive Date: 20190723
  Receipt Date: 20190723
  Transmission Date: 20191004
  Serious: Yes (Other)
  Sender: FDA-Public Use
  Company Number: US-MELINTA THERAPEUTICS, INC-US-MLNT-19-00110

PATIENT
  Age: 59 Year
  Sex: Male
  Weight: 118 kg

DRUGS (11)
  1. AMPICILLIN [Concomitant]
     Active Substance: AMPICILLIN
     Indication: MEDICAL DEVICE SITE INFECTION
  2. DAPTOMYCIN. [Concomitant]
     Active Substance: DAPTOMYCIN
     Indication: STAPHYLOCOCCAL BACTERAEMIA
     Dosage: 8 MG/KG
     Route: 042
  3. ORBACTIV [Suspect]
     Active Substance: ORITAVANCIN
     Indication: OSTEOMYELITIS
     Route: 042
  4. CLINDAMYCIN. [Concomitant]
     Active Substance: CLINDAMYCIN
     Indication: STAPHYLOCOCCAL BACTERAEMIA
     Dosage: NOT PROVIDED.
     Route: 042
  5. ORBACTIV [Suspect]
     Active Substance: ORITAVANCIN
     Indication: ENTEROCOCCAL INFECTION
     Route: 042
  6. VANCOMYCIN [Concomitant]
     Active Substance: VANCOMYCIN
     Indication: STAPHYLOCOCCAL BACTERAEMIA
     Dosage: DOSED TO ACHIEVE A SERUM TROUGH OF 15 TO 20 MG/LITER
     Route: 042
  7. AMPICILLIN [Concomitant]
     Active Substance: AMPICILLIN
     Indication: OSTEOMYELITIS
  8. ORBACTIV [Suspect]
     Active Substance: ORITAVANCIN
     Indication: MEDICAL DEVICE SITE INFECTION
  9. AMPICILLIN [Concomitant]
     Active Substance: AMPICILLIN
     Indication: ENTEROCOCCAL INFECTION
  10. TIGECYCLINE. [Concomitant]
     Active Substance: TIGECYCLINE
     Indication: ENTEROCOCCAL INFECTION
     Dosage: NOT PROVIDED.
  11. QUINUPRISTIN-DALFOPRISTIN [Concomitant]
     Indication: ENTEROCOCCAL INFECTION
     Dosage: NOT PROVIDED.

REACTIONS (5)
  - Device related infection [Unknown]
  - Product use issue [Unknown]
  - Staphylococcal infection [Unknown]
  - Off label use [Unknown]
  - Drug effective for unapproved indication [Unknown]
